FAERS Safety Report 6648136-9 (Version None)
Quarter: 2010Q1

REPORT INFORMATION
  Report Type: 
  Country: None (occurrence: None)
  Receive Date: 20100324
  Receipt Date: 20100322
  Transmission Date: 20100710
  Serious: Yes (Life-Threatening, Hospitalization, Other)
  Sender: FDA-Public Use
  Company Number: PHHY2010GB10982

PATIENT
  Sex: Male

DRUGS (4)
  1. CLOZARIL [Suspect]
     Indication: SCHIZOPHRENIA
     Dosage: 25MG. 75 MG
     Route: 048
     Dates: start: 19980901
  2. CLOZARIL [Suspect]
     Dosage: AROUND 60 TABLETS (100MG)
  3. ABILIFY [Concomitant]
     Indication: SCHIZOPHRENIA
     Dosage: 15 MG DAILY
     Route: 048
     Dates: start: 20090605
  4. DULOXETINE HYDROCHLORIDE [Concomitant]
     Dosage: 60 MG DAILY
     Route: 048
     Dates: start: 20090716

REACTIONS (4)
  - ANTIPSYCHOTIC DRUG LEVEL INCREASED [None]
  - GRAND MAL CONVULSION [None]
  - LOSS OF CONSCIOUSNESS [None]
  - OVERDOSE [None]
